APPROVED DRUG PRODUCT: MESALAMINE
Active Ingredient: MESALAMINE
Strength: 375MG
Dosage Form/Route: CAPSULE, EXTENDED RELEASE;ORAL
Application: A207271 | Product #001 | TE Code: AB
Applicant: MYLAN PHARMACEUTICALS INC
Approved: Nov 20, 2019 | RLD: No | RS: No | Type: RX